FAERS Safety Report 9248604 (Version 1)
Quarter: 2013Q2

REPORT INFORMATION
  Report Type: Spontaneous
  Country: GB (occurrence: GB)
  Receive Date: 20130423
  Receipt Date: 20130423
  Transmission Date: 20140414
  Serious: Yes (Other)
  Sender: FDA-Public Use
  Company Number: GB-TEVA-397969ISR

PATIENT
  Age: 37 Year
  Sex: Female
  Weight: 67.12 kg

DRUGS (1)
  1. METRONIDAZOLE [Suspect]
     Indication: ABSCESS ORAL
     Dosage: UNSURE - AS DIRECTED BY DENTIST
     Route: 048
     Dates: start: 20080607, end: 20080614

REACTIONS (3)
  - Rash [Recovered/Resolved]
  - Nausea [Recovered/Resolved]
  - Syncope [Recovered/Resolved]
